FAERS Safety Report 8243605-2 (Version None)
Quarter: 2012Q1

REPORT INFORMATION
  Report Type: 
  Country: None (occurrence: None)
  Receive Date: 20120329
  Receipt Date: 20120321
  Transmission Date: 20120608
  Serious: Yes (Other)
  Sender: FDA-Public Use
  Company Number: US-BAYER-2011-036313

PATIENT
  Age: 19 Year
  Sex: Female
  Weight: 108.84 kg

DRUGS (3)
  1. MICROGESTIN FE 1.5/30 [Concomitant]
     Dosage: UNK
     Dates: start: 20080414, end: 20080609
  2. YAZ [Suspect]
     Indication: PREMENSTRUAL SYNDROME
  3. YAZ [Suspect]
     Indication: ACNE
     Dosage: UNK
     Dates: start: 20080914, end: 20081124

REACTIONS (7)
  - ANHEDONIA [None]
  - CHEST PAIN [None]
  - PAIN [None]
  - ANXIETY [None]
  - ARRHYTHMIA [None]
  - HEART RATE INCREASED [None]
  - PALPITATIONS [None]
